FAERS Safety Report 4636681-7 (Version None)
Quarter: 2005Q2

REPORT INFORMATION
  Report Type: 
  Country: None (occurrence: None)
  Receive Date: 20050414
  Receipt Date: 20050405
  Transmission Date: 20051028
  Serious: Yes (Other)
  Sender: FDA-Public Use
  Company Number: DE-2005-001895

PATIENT
  Age: 54 Year
  Sex: Female
  Weight: 65 kg

DRUGS (2)
  1. MIRENA [Suspect]
     Indication: MENORRHAGIA
     Dosage: 20 UG/DAY, CONT, INTRA-UTERINE
     Route: 015
     Dates: start: 20041213
  2. BISOMERCK (BISPROLOL FUMARATE) [Concomitant]

REACTIONS (8)
  - ANGINA PECTORIS [None]
  - AORTIC STENOSIS [None]
  - CARDIAC DISORDER [None]
  - CONDITION AGGRAVATED [None]
  - DEPRESSED MOOD [None]
  - DYSPNOEA EXACERBATED [None]
  - HYPERTENSION [None]
  - MIGRAINE [None]
